FAERS Safety Report 21028396 (Version 1)
Quarter: 2022Q2

REPORT INFORMATION
  Report Type: Spontaneous
  Country: AU (occurrence: AU)
  Receive Date: 20220630
  Receipt Date: 20220630
  Transmission Date: 20220721
  Serious: Yes (Other)
  Sender: FDA-Public Use
  Company Number: AU-BIOGEN-2022BI01100526

PATIENT
  Age: 48 Year
  Sex: Female

DRUGS (4)
  1. TYSABRI [Suspect]
     Active Substance: NATALIZUMAB
     Indication: Multiple sclerosis
     Route: 050
     Dates: start: 20180221, end: 20220122
  2. TYSABRI [Suspect]
     Active Substance: NATALIZUMAB
     Route: 050
  3. LEVLEN [Concomitant]
     Active Substance: ETHINYL ESTRADIOL\LEVONORGESTREL
     Indication: Product used for unknown indication
     Route: 050
  4. VITAMIN D [Concomitant]
     Active Substance: VITAMIN D NOS
     Indication: Product used for unknown indication
     Route: 050

REACTIONS (7)
  - Pemphigoid [Not Recovered/Not Resolved]
  - Pemphigus [Not Recovered/Not Resolved]
  - Skin atrophy [Unknown]
  - Rash pruritic [Unknown]
  - Skin exfoliation [Unknown]
  - Blister [Unknown]
  - Urticaria [Not Recovered/Not Resolved]

NARRATIVE: CASE EVENT DATE: 20211223
